FAERS Safety Report 8281467-8 (Version None)
Quarter: 2012Q2

REPORT INFORMATION
  Report Type: 
  Country: None (occurrence: None)
  Receive Date: 20120413
  Receipt Date: 20120406
  Transmission Date: 20120825
  Serious: Yes (Other)
  Sender: FDA-Public Use
  Company Number: US-PFIZER INC-2012088055

PATIENT
  Sex: Female

DRUGS (1)
  1. LYRICA [Suspect]
     Dosage: 75 MG, FREQUENCY UNKNOWN

REACTIONS (3)
  - BONE DISORDER [None]
  - FEELING ABNORMAL [None]
  - PAIN [None]
